FAERS Safety Report 7866133-2 (Version None)
Quarter: 2011Q4

REPORT INFORMATION
  Report Type: 
  Country: None (occurrence: None)
  Receive Date: 20111028
  Receipt Date: 20110428
  Transmission Date: 20120403
  Serious: No
  Sender: FDA-Public Use
  Company Number: US-GLAXOSMITHKLINE-A0924933A

PATIENT
  Age: 71 Year
  Sex: Female

DRUGS (2)
  1. DILTIAZEM HCL [Concomitant]
  2. ADVAIR DISKUS 100/50 [Suspect]
     Indication: ILL-DEFINED DISORDER
     Dosage: 1PUFF TWICE PER DAY
     Route: 055
     Dates: start: 20110108

REACTIONS (4)
  - OVERDOSE [None]
  - DYSPHONIA [None]
  - DYSGEUSIA [None]
  - NASAL DISCOMFORT [None]
